FAERS Safety Report 6817400-2 (Version None)
Quarter: 2010Q3

REPORT INFORMATION
  Report Type: 
  Country: None (occurrence: None)
  Receive Date: 20100706
  Receipt Date: 20100629
  Transmission Date: 20110219
  Serious: Yes (Hospitalization)
  Sender: FDA-Public Use
  Company Number: A0788400A

PATIENT
  Age: 52 Year
  Sex: Male

DRUGS (1)
  1. AVANDAMET [Suspect]
     Indication: DIABETES MELLITUS
     Route: 048
     Dates: start: 20070101, end: 20070701

REACTIONS (4)
  - BLINDNESS [None]
  - CARDIAC FAILURE CONGESTIVE [None]
  - MACULAR OEDEMA [None]
  - MYOCARDIAL INFARCTION [None]
